FAERS Safety Report 8058118-0 (Version None)
Quarter: 2012Q1

REPORT INFORMATION
  Report Type: 
  Country: None (occurrence: None)
  Receive Date: 20120118
  Receipt Date: 20120118
  Transmission Date: 20120608
  Serious: Yes (Other)
  Sender: FDA-Public Use
  Company Number: None

PATIENT
  Age: 81 Year
  Sex: Male

DRUGS (12)
  1. TERAZOSIN HCL [Concomitant]
  2. DECADRON [Concomitant]
  3. TRAMADOL HCL [Concomitant]
  4. REVLIMID [Suspect]
     Indication: MULTIPLE MYELOMA
     Dosage: 5MG QDX21D/28D ORALLY
     Route: 048
     Dates: start: 20100401, end: 20100701
  5. REVLIMID [Suspect]
     Indication: MULTIPLE MYELOMA
     Dosage: 5MG QDX21D/28D ORALLY
     Route: 048
     Dates: start: 20091101, end: 20100201
  6. REVLIMID [Suspect]
     Indication: MULTIPLE MYELOMA
     Dosage: 5MG QDX21D/28D ORALLY
     Route: 048
     Dates: start: 20110501, end: 20110701
  7. LOVENOX [Concomitant]
  8. AREDIA [Concomitant]
  9. LEVOTHROID [Concomitant]
  10. LORAZEPAM [Concomitant]
  11. FINASTERIDE [Concomitant]
  12. SIMVASTATIN [Concomitant]

REACTIONS (2)
  - FATIGUE [None]
  - NEUTROPHIL COUNT DECREASED [None]
